APPROVED DRUG PRODUCT: ACETYLCYSTEINE
Active Ingredient: ACETYLCYSTEINE
Strength: 20%
Dosage Form/Route: SOLUTION;INHALATION, ORAL
Application: A072547 | Product #001 | TE Code: AN
Applicant: AMERICAN REGENT INC
Approved: Jul 28, 1995 | RLD: No | RS: Yes | Type: RX